FAERS Safety Report 9788515 (Version 1)
Quarter: 2013Q4

REPORT INFORMATION
  Report Type: Spontaneous
  Country: US (occurrence: US)
  Receive Date: 20131230
  Receipt Date: 20131230
  Transmission Date: 20140711
  Serious: Yes (Hospitalization)
  Sender: FDA-Public Use
  Company Number: US-AMGEN-USASP2013090247

PATIENT
  Age: 41 Year
  Sex: Female

DRUGS (1)
  1. ARANESP [Suspect]
     Indication: NEPHROGENIC ANAEMIA
     Dosage: 200 MUG, Q2WK
     Route: 065

REACTIONS (2)
  - Dizziness [Unknown]
  - Asthenia [Unknown]
